FAERS Safety Report 9926113 (Version 1)
Quarter: 2014Q1

REPORT INFORMATION
  Report Type: Report from Study
  Country: NL (occurrence: NL)
  Receive Date: 20140226
  Receipt Date: 20140226
  Transmission Date: 20141002
  Serious: Yes (Hospitalization)
  Sender: FDA-Public Use
  Company Number: NL-TEVA-464110ISR

PATIENT
  Age: 56 Year
  Sex: Female

DRUGS (3)
  1. MYOCET [Suspect]
  2. PACLITAXEL [Suspect]
     Indication: BREAST CANCER METASTATIC
     Dosage: 114 MILLIGRAM DAILY;
     Route: 042
     Dates: start: 20131025, end: 20140124
  3. BEVACIZUMAB [Suspect]
     Indication: BREAST CANCER METASTATIC
     Dosage: 750 MILLIGRAM DAILY;
     Route: 042
     Dates: start: 20131025, end: 20140124

REACTIONS (1)
  - Abscess limb [Recovered/Resolved]
